FAERS Safety Report 4489173-2 (Version None)
Quarter: 2004Q4

REPORT INFORMATION
  Report Type: 
  Country: None (occurrence: None)
  Receive Date: 20041029
  Receipt Date: 20041020
  Transmission Date: 20050328
  Serious: Yes (Hospitalization, Other)
  Sender: FDA-Public Use
  Company Number: US-MERCK-0410USA03158

PATIENT
  Age: 66 Year
  Sex: Female

DRUGS (2)
  1. VIOXX [Suspect]
     Indication: ARTHRITIS
     Route: 048
  2. CELEBREX [Suspect]
     Route: 065

REACTIONS (7)
  - CEREBROVASCULAR ACCIDENT [None]
  - CHEST PAIN [None]
  - DEMENTIA ALZHEIMER'S TYPE [None]
  - HYPERTENSION [None]
  - MYOCARDIAL INFARCTION [None]
  - NECK PAIN [None]
  - PAIN IN EXTREMITY [None]
